FAERS Safety Report 22237112 (Version 2)
Quarter: 2023Q2

REPORT INFORMATION
  Report Type: Report from Study
  Country: US (occurrence: None)
  Receive Date: 20230421
  Receipt Date: 20230515
  Transmission Date: 20230721
  Serious: Yes (Hospitalization, Other)
  Sender: FDA-Public Use
  Company Number: US-Merck Healthcare KGaA-9396633

PATIENT
  Sex: Female

DRUGS (2)
  1. MAVENCLAD [Suspect]
     Active Substance: CLADRIBINE
     Indication: Multiple sclerosis
     Dosage: YEAR ONE MONTH ONE THERAPY
     Route: 048
     Dates: start: 20220603, end: 20220607
  2. MAVENCLAD [Suspect]
     Active Substance: CLADRIBINE
     Dosage: YEAR ONE MONTH TWO THERAPY
     Route: 048
     Dates: start: 20220711

REACTIONS (9)
  - Trigeminal neuralgia [Unknown]
  - Bell^s palsy [Unknown]
  - Fall [Unknown]
  - Muscle spasms [Unknown]
  - Visual impairment [Not Recovered/Not Resolved]
  - Multiple sclerosis [Unknown]
  - Hypersomnia [Unknown]
  - Limb injury [Recovering/Resolving]
  - Foot fracture [Recovering/Resolving]
